FAERS Safety Report 15940562 (Version 1)
Quarter: 2019Q1

REPORT INFORMATION
  Report Type: Spontaneous
  Country: TR (occurrence: TR)
  Receive Date: 20190208
  Receipt Date: 20190208
  Transmission Date: 20190417
  Serious: Yes (Other)
  Sender: FDA-Public Use
  Company Number: TR-ELI_LILLY_AND_COMPANY-TR201902002355

PATIENT
  Sex: Male

DRUGS (2)
  1. A.S.A. [Concomitant]
     Indication: PRODUCT USED FOR UNKNOWN INDICATION
  2. CIALIS [Suspect]
     Active Substance: TADALAFIL
     Indication: ERECTILE DYSFUNCTION
     Dosage: 5 MG, UNKNOWN
     Route: 065
     Dates: start: 20190128, end: 20190204

REACTIONS (12)
  - Burning sensation [Recovering/Resolving]
  - Syncope [Recovering/Resolving]
  - Hypoaesthesia [Not Recovered/Not Resolved]
  - Feeling abnormal [Not Recovered/Not Resolved]
  - Tremor [Not Recovered/Not Resolved]
  - Fatigue [Recovering/Resolving]
  - Drug ineffective [Unknown]
  - Headache [Not Recovered/Not Resolved]
  - Peripheral swelling [Recovering/Resolving]
  - Arrhythmia [Not Recovered/Not Resolved]
  - Contusion [Not Recovered/Not Resolved]
  - Palpitations [Unknown]
